FAERS Safety Report 9444480 (Version 2)
Quarter: 2013Q4

REPORT INFORMATION
  Report Type: Spontaneous
  Country: US (occurrence: US)
  Receive Date: 20130807
  Receipt Date: 20131024
  Transmission Date: 20140711
  Serious: Yes (Hospitalization, Other)
  Sender: FDA-Public Use
  Company Number: US-BAYER-2013-094628

PATIENT
  Age: 20 Year
  Sex: Female
  Weight: 71.66 kg

DRUGS (1)
  1. MIRENA [Suspect]
     Indication: CONTRACEPTION
     Dosage: 20 MCG/24HR, CONT
     Route: 015
     Dates: start: 20091216, end: 201304

REACTIONS (13)
  - Uterine perforation [None]
  - Injury [None]
  - Pain [None]
  - Emotional distress [None]
  - Infertility female [None]
  - Urinary tract infection [None]
  - Abdominal pain lower [None]
  - Ovarian cyst [None]
  - Depression [None]
  - Device dislocation [None]
  - Menorrhagia [None]
  - Device misuse [None]
  - Genital haemorrhage [None]
